FAERS Safety Report 25747357 (Version 1)
Quarter: 2025Q3

REPORT INFORMATION
  Report Type: Spontaneous
  Country: CN (occurrence: CN)
  Receive Date: 20250901
  Receipt Date: 20250901
  Transmission Date: 20251021
  Serious: Yes (Hospitalization)
  Sender: COHERUS
  Company Number: CN-SHANGHAI JUNSHI BIOSCIENCES CO., LTD.-CN2025015472

PATIENT

DRUGS (4)
  1. TORIPALIMAB [Suspect]
     Active Substance: TORIPALIMAB
     Indication: Metastases to liver
     Route: 041
     Dates: start: 20250611, end: 20250611
  2. VOROLANIB [Suspect]
     Active Substance: VOROLANIB
     Indication: Metastases to liver
     Dosage: 200 MG, QD
     Route: 048
     Dates: start: 20250611, end: 20250621
  3. AFINITOR [Suspect]
     Active Substance: EVEROLIMUS
     Indication: Metastases to liver
     Dosage: 5 MG, QD
     Route: 048
     Dates: start: 20250611, end: 20250625
  4. SODIUM CHLORIDE [Concomitant]
     Active Substance: SODIUM CHLORIDE
     Indication: Medication dilution
     Route: 041
     Dates: start: 20250611, end: 20250611

REACTIONS (1)
  - Myelosuppression [Unknown]

NARRATIVE: CASE EVENT DATE: 20250627
